FAERS Safety Report 4795393-X (Version None)
Quarter: 2005Q4

REPORT INFORMATION
  Report Type: 
  Country: None (occurrence: None)
  Receive Date: 20051006
  Receipt Date: 20051006
  Transmission Date: 20060501
  Serious: Yes (Hospitalization)
  Sender: FDA-Public Use
  Company Number: None

PATIENT
  Sex: Male
  Weight: 65 kg

DRUGS (9)
  1. TENOFOVIR [Suspect]
     Indication: HIV INFECTION
     Dosage: 300 MG PO Q 24HRS
     Route: 048
     Dates: start: 20040526, end: 20040603
  2. ATORVASTATIN [Concomitant]
  3. EMTRICITABINE [Concomitant]
  4. LOPINAVIR/RITENAVIR [Concomitant]
  5. TENOFOVIR [Concomitant]
  6. AZITHROMYCIN [Concomitant]
  7. ETHANBUTOL [Concomitant]
  8. CLOTRIMAZOLE [Concomitant]
  9. IBUPROFEN [Concomitant]

REACTIONS (6)
  - BLOOD CREATININE INCREASED [None]
  - BLOOD UREA INCREASED [None]
  - DYSPNOEA EXERTIONAL [None]
  - LIP PAIN [None]
  - MYCOBACTERIUM AVIUM COMPLEX INFECTION [None]
  - PYREXIA [None]
